FAERS Safety Report 7974081-2 (Version None)
Quarter: 2011Q4

REPORT INFORMATION
  Report Type: 
  Country: None (occurrence: None)
  Receive Date: 20111213
  Receipt Date: 20111206
  Transmission Date: 20120403
  Serious: Yes (Hospitalization, Other)
  Sender: FDA-Public Use
  Company Number: JP-ROXANE LABORATORIES, INC.-2011-RO-01761RO

PATIENT
  Age: 57 Year
  Sex: Female

DRUGS (6)
  1. LEFLUNOMIDE [Suspect]
     Indication: RHEUMATOID ARTHRITIS
     Dosage: 20 MG
  2. METHOTREXATE [Suspect]
     Indication: RHEUMATOID ARTHRITIS
  3. PREDNISOLONE [Suspect]
     Dosage: 7.5 MG
  4. DEOXICHOLIC ACID [Suspect]
     Indication: RHEUMATOID ARTHRITIS
     Dosage: 600 MG
  5. PREDNISOLONE [Suspect]
     Indication: RHEUMATOID ARTHRITIS
     Dosage: 5 MG
  6. METHOTREXATE [Suspect]

REACTIONS (4)
  - NEUTROPHILIC PANNICULITIS [None]
  - RHEUMATOID ARTHRITIS [None]
  - DERMATITIS [None]
  - RHEUMATOID NODULE [None]
